FAERS Safety Report 14893996 (Version 3)
Quarter: 2018Q3

REPORT INFORMATION
  Report Type: Not Available
  Country: US (occurrence: US)
  Receive Date: 20180514
  Receipt Date: 20180810
  Transmission Date: 20181010
  Serious: Yes (Death, Hospitalization)
  Sender: FDA-Public Use
  Company Number: US-NEUROCRINE BIOSCIENCES INC.-2018NBI01383

PATIENT
  Age: 38 Year
  Sex: Male
  Weight: 150.27 kg

DRUGS (22)
  1. ACETYLCYSTEINE. [Concomitant]
     Active Substance: ACETYLCYSTEINE
     Route: 048
     Dates: start: 20180521, end: 20180601
  2. INGREZZA [Suspect]
     Active Substance: VALBENAZINE
     Route: 048
     Dates: start: 20180407, end: 20180419
  3. INGREZZA [Suspect]
     Active Substance: VALBENAZINE
     Route: 048
     Dates: start: 20180521, end: 20180601
  4. JANUVIA [Concomitant]
     Active Substance: SITAGLIPTIN PHOSPHATE
     Route: 048
     Dates: start: 20180521, end: 20180601
  5. OMEPRAZOLE. [Concomitant]
     Active Substance: OMEPRAZOLE
     Indication: GASTROOESOPHAGEAL REFLUX DISEASE
     Route: 048
     Dates: start: 20180521, end: 20180601
  6. INVEGA SUSTENNA [Concomitant]
     Active Substance: PALIPERIDONE PALMITATE
     Indication: MENTAL DISORDER
     Dosage: 234MG/1.5ML
     Route: 030
     Dates: start: 20180527, end: 20180601
  7. PINDOLOL. [Concomitant]
     Active Substance: PINDOLOL
     Indication: ESSENTIAL HYPERTENSION
     Dosage: HOLD IF SYSTOLIC BLOOD PRESSURE LESS THAN 110 OF HEART RATE LESS THAN 55
     Dates: start: 20180521, end: 20180601
  8. THERAPEUTIC M VITAMIN [Concomitant]
     Indication: HYPOVITAMINOSIS
     Route: 048
     Dates: start: 20180522, end: 20180601
  9. NUEDEXTA [Concomitant]
     Active Substance: DEXTROMETHORPHAN HYDROBROMIDE\QUINIDINE SULFATE
     Indication: AGGRESSION
     Dosage: 20?10 MG
     Route: 048
     Dates: start: 20180521, end: 20180601
  10. INGREZZA [Suspect]
     Active Substance: VALBENAZINE
     Route: 048
     Dates: start: 20180327, end: 20180327
  11. JANUVIA [Concomitant]
     Active Substance: SITAGLIPTIN PHOSPHATE
     Indication: TYPE 2 DIABETES MELLITUS
     Route: 048
     Dates: start: 20180328, end: 20180419
  12. MUCINEX [Concomitant]
     Active Substance: GUAIFENESIN
     Route: 048
     Dates: start: 20180521, end: 20180601
  13. POTASSIUM CHLORIDE. [Concomitant]
     Active Substance: POTASSIUM CHLORIDE
     Indication: HYPOKALAEMIA
     Dosage: DO NOT CRUSH OR CHEW, MAY SLURRY
     Route: 048
     Dates: start: 20180522, end: 20180601
  14. PIOGLITAZONE. [Concomitant]
     Active Substance: PIOGLITAZONE
     Indication: TYPE 2 DIABETES MELLITUS
     Route: 048
     Dates: start: 20180521, end: 20180601
  15. GEODON [Concomitant]
     Active Substance: ZIPRASIDONE HYDROCHLORIDE\ZIPRASIDONE MESYLATE
     Indication: VASCULAR DEMENTIA
  16. THORAZINE [Concomitant]
     Active Substance: CHLORPROMAZINE
     Indication: ABNORMAL BEHAVIOUR
     Route: 048
     Dates: start: 20180521, end: 20180601
  17. INGREZZA [Suspect]
     Active Substance: VALBENAZINE
     Indication: TARDIVE DYSKINESIA
     Route: 048
     Dates: start: 20180331, end: 20180406
  18. ASPIRIN. [Concomitant]
     Active Substance: ASPIRIN
  19. NUEDEXTA [Concomitant]
     Active Substance: DEXTROMETHORPHAN HYDROBROMIDE\QUINIDINE SULFATE
     Indication: AFFECT LABILITY
  20. GEODON [Concomitant]
     Active Substance: ZIPRASIDONE HYDROCHLORIDE\ZIPRASIDONE MESYLATE
     Indication: ABNORMAL BEHAVIOUR
  21. MUCINEX [Concomitant]
     Active Substance: GUAIFENESIN
     Indication: COUGH
     Route: 048
     Dates: start: 20180409, end: 20180419
  22. ACETYLCYSTEINE. [Concomitant]
     Active Substance: ACETYLCYSTEINE
     Indication: AFFECTIVE DISORDER
     Route: 048
     Dates: start: 20180327, end: 20180419

REACTIONS (4)
  - Choking [Fatal]
  - Cough [Unknown]
  - Drooling [Unknown]
  - Abnormal behaviour [Unknown]

NARRATIVE: CASE EVENT DATE: 2018
